FAERS Safety Report 5553367-5 (Version None)
Quarter: 2007Q4

REPORT INFORMATION
  Report Type: 
  Country: None (occurrence: None)
  Receive Date: 20071128
  Receipt Date: 20060816
  Transmission Date: 20080405
  Serious: Yes (Hospitalization, Disabling)
  Sender: FDA-Public Use
  Company Number: CIP06001457

PATIENT
  Age: 69 Year
  Sex: Male
  Weight: 76.2 kg

DRUGS (6)
  1. ACTONEL [Suspect]
     Indication: OSTEOPOROSIS
     Dosage: UNKNOWN ONCE WEEKLY, ORAL
     Route: 048
     Dates: start: 20050305
  2. VITAMIN E [Concomitant]
  3. SELENIUM (SELENIUM) [Concomitant]
  4. ACETYLSALICYLIC ACID SRT [Concomitant]
  5. GLUCOSAMINE W/CHONDROITIN (GLUCOSAMINE, CHONDROITIN SULFATE) [Concomitant]
  6. MULTIVIT (VITAMINS NOS) [Concomitant]

REACTIONS (4)
  - DRUG INEFFECTIVE [None]
  - LIMB CRUSHING INJURY [None]
  - LOWER LIMB FRACTURE [None]
  - ROAD TRAFFIC ACCIDENT [None]
